FAERS Safety Report 25581764 (Version 1)
Quarter: 2025Q3

REPORT INFORMATION
  Report Type: Spontaneous
  Country: US (occurrence: US)
  Receive Date: 20250719
  Receipt Date: 20250719
  Transmission Date: 20251021
  Serious: Yes (Hospitalization, Other)
  Sender: AMNEAL
  Company Number: US-AMNEAL PHARMACEUTICALS-2025-AMRX-02659

PATIENT
  Age: 35 Year
  Sex: Female

DRUGS (1)
  1. IBUPROFEN [Suspect]
     Active Substance: IBUPROFEN
     Indication: Varicella
     Route: 065

REACTIONS (1)
  - Necrotising fasciitis [Recovered/Resolved]
